FAERS Safety Report 23558291 (Version 1)
Quarter: 2024Q1

REPORT INFORMATION
  Report Type: Spontaneous
  Country: US (occurrence: US)
  Receive Date: 20240223
  Receipt Date: 20240223
  Transmission Date: 20240409
  Serious: No
  Sender: FDA-Public Use
  Company Number: US-AMGEN-USASP2024038131

PATIENT
  Age: 79 Year
  Sex: Male

DRUGS (1)
  1. REPATHA [Suspect]
     Active Substance: EVOLOCUMAB
     Indication: Lipids increased
     Dosage: 140 MILLIGRAM, QMO
     Route: 065
     Dates: start: 2017

REACTIONS (3)
  - Accidental exposure to product [Unknown]
  - Incorrect dose administered by device [Unknown]
  - Off label use [Unknown]

NARRATIVE: CASE EVENT DATE: 20240216
